FAERS Safety Report 15359636 (Version 1)
Quarter: 2018Q3

REPORT INFORMATION
  Report Type: Report from Study
  Country: None (occurrence: US)
  Receive Date: 20180907
  Receipt Date: 20180907
  Transmission Date: 20181010
  Serious: Yes (Death)
  Sender: FDA-Public Use
  Company Number: US-ABBVIE-18K-163-2476945-00

PATIENT
  Age: 72 Year
  Sex: Female

DRUGS (4)
  1. VENCLEXTA [Suspect]
     Active Substance: VENETOCLAX
     Indication: ACUTE MYELOID LEUKAEMIA
     Dosage: DAY 1
     Route: 048
  2. VENCLEXTA [Suspect]
     Active Substance: VENETOCLAX
     Dosage: DAY 3
     Route: 048
  3. VENCLEXTA [Suspect]
     Active Substance: VENETOCLAX
     Indication: REMISSION NOT ACHIEVED
     Dosage: DAY 2
     Route: 048
  4. VENCLEXTA [Suspect]
     Active Substance: VENETOCLAX
     Dosage: 600MG DAILY TO START ON DAY 4
     Route: 048

REACTIONS (1)
  - Intentional product use issue [Fatal]

NARRATIVE: CASE EVENT DATE: 20180826
